FAERS Safety Report 25085576 (Version 5)
Quarter: 2025Q3

REPORT INFORMATION
  Report Type: Spontaneous
  Country: JP (occurrence: JP)
  Receive Date: 20250317
  Receipt Date: 20250803
  Transmission Date: 20251020
  Serious: No
  Sender: ALEXION PHARMACEUTICALS
  Company Number: JP-ASTRAZENECA-250025688_011620_P_1

PATIENT
  Age: 62 Year

DRUGS (3)
  1. LYNPARZA [Suspect]
     Active Substance: OLAPARIB
     Indication: Prostate cancer
  2. LYNPARZA [Suspect]
     Active Substance: OLAPARIB
  3. LYNPARZA [Suspect]
     Active Substance: OLAPARIB

REACTIONS (1)
  - No adverse event [Unknown]
